FAERS Safety Report 9772973 (Version 2)
Quarter: 2014Q2

REPORT INFORMATION
  Report Type: Spontaneous
  Country: FR (occurrence: None)
  Receive Date: 20131217
  Receipt Date: 20140603
  Transmission Date: 20141212
  Serious: Yes (Other)
  Sender: FDA-Public Use
  Company Number: JPI-P-018759

PATIENT
  Age: 19 Year
  Sex: Female
  Weight: 60 kg

DRUGS (5)
  1. XYREM (SODIUM OXYBATE) ORAL SOLUTION, 500MG/ML [Suspect]
     Indication: NARCOLEPSY
     Dosage: 3 G, BID, ORAL
     Route: 048
     Dates: start: 201101
  2. XYREM (SODIUM OXYBATE) ORAL SOLUTION, 500MG/ML [Suspect]
     Indication: CATAPLEXY
     Dosage: 3 G, BID, ORAL
     Route: 048
     Dates: start: 201101
  3. METHYLPHENIDATE (METHYLPHENIDATE HYDROCHLORIDE) [Concomitant]
  4. EFFEXOR (VENLAFAXINE HYDROCHLORIDE) UNKNOWN [Concomitant]
  5. RITALINE (METHYLPHENIDATE HYDROCHLORIDE) [Concomitant]

REACTIONS (17)
  - Angioedema [None]
  - Sleep apnoea syndrome [None]
  - Ear swelling [None]
  - Muscular weakness [None]
  - Insomnia [None]
  - Somnambulism [None]
  - Confusional state [None]
  - Enuresis [None]
  - Sleep-related eating disorder [None]
  - Fatigue [None]
  - Fall [None]
  - Headache [None]
  - Overdose [None]
  - Inappropriate schedule of drug administration [None]
  - Nightmare [None]
  - Hallucination [None]
  - Parasomnia [None]
